FAERS Safety Report 5483991-X (Version None)
Quarter: 2007Q4

REPORT INFORMATION
  Report Type: 
  Country: None (occurrence: None)
  Receive Date: 20071012
  Receipt Date: 20071003
  Transmission Date: 20080405
  Serious: Yes (Other)
  Sender: FDA-Public Use
  Company Number: US-SANOFI-SYNTHELABO-A03200703646

PATIENT
  Sex: Female
  Weight: 172.4 kg

DRUGS (3)
  1. COUMADIN [Concomitant]
     Indication: DRUG USE FOR UNKNOWN INDICATION
     Dosage: UNK
     Route: 065
  2. ATENOLOL [Concomitant]
     Indication: DRUG USE FOR UNKNOWN INDICATION
     Dosage: UNK
     Route: 065
  3. AMBIEN [Suspect]
     Indication: INSOMNIA
     Route: 048
     Dates: start: 20050201, end: 20050101

REACTIONS (12)
  - ABDOMINAL PAIN UPPER [None]
  - ABNORMAL BEHAVIOUR [None]
  - AMNESIA [None]
  - CHEST PAIN [None]
  - DRUG INEFFECTIVE [None]
  - EATING DISORDER [None]
  - GASTRIC DILATATION [None]
  - IMPAIRED HEALING [None]
  - PAIN IN EXTREMITY [None]
  - SLEEP TALKING [None]
  - SOMNAMBULISM [None]
  - WEIGHT INCREASED [None]
